FAERS Safety Report 6913857-7 (Version None)
Quarter: 2010Q3

REPORT INFORMATION
  Report Type: 
  Country: None (occurrence: None)
  Receive Date: 20100809
  Receipt Date: 20100803
  Transmission Date: 20110219
  Serious: Yes (Hospitalization)
  Sender: FDA-Public Use
  Company Number: US-RB-012512-10

PATIENT
  Age: 29 Year
  Sex: Female

DRUGS (2)
  1. SUBOXONE [Suspect]
     Indication: DRUG DEPENDENCE
     Route: 065
     Dates: start: 20070101, end: 20100201
  2. TYLENOL-500 [Suspect]
     Indication: BACK PAIN
     Dosage: DOSING DETAILS UNKNOWN
     Route: 065
     Dates: end: 20100201

REACTIONS (12)
  - BACK PAIN [None]
  - BLOOD PRESSURE ABNORMAL [None]
  - COLLAPSE OF LUNG [None]
  - COMA [None]
  - GAIT DISTURBANCE [None]
  - HEART RATE ABNORMAL [None]
  - MUSCLE ATROPHY [None]
  - MUSCLE SPASMS [None]
  - MYALGIA [None]
  - ORGAN FAILURE [None]
  - PAIN IN EXTREMITY [None]
  - PNEUMONIA [None]
